FAERS Safety Report 6050177-X (Version None)
Quarter: 2009Q1

REPORT INFORMATION
  Report Type: 
  Country: None (occurrence: None)
  Receive Date: 20090121
  Receipt Date: 20090115
  Transmission Date: 20090719
  Serious: Yes (Death)
  Sender: FDA-Public Use
  Company Number: 2009-189637-NL

PATIENT
  Age: 80 Year
  Sex: Female

DRUGS (8)
  1. DANAPAROID SODIUM [Suspect]
     Dosage: DF/5000 IU INTRAVENOUS (NOS) 5 DAYS/ 6 DAYS
     Route: 042
     Dates: start: 20081215, end: 20081219
  2. DANAPAROID SODIUM [Suspect]
     Dosage: DF/5000 IU INTRAVENOUS (NOS) 5 DAYS/ 6 DAYS
     Route: 042
     Dates: start: 20081219, end: 20081224
  3. HEPARIN SODIUM [Suspect]
     Indication: THROMBOCYTOPENIA
     Dosage: 1300 IU Q1HR INTRAVENOUS (NOS) 1 WEEK/ 2 DAYS
     Route: 042
     Dates: start: 20081208, end: 20081214
  4. HEPARIN SODIUM [Suspect]
     Indication: THROMBOCYTOPENIA
     Dosage: 1300 IU Q1HR INTRAVENOUS (NOS) 1 WEEK/ 2 DAYS
     Route: 042
     Dates: start: 20081214, end: 20081215
  5. AMIODARONE HCL [Concomitant]
  6. FUROSEMIDE [Concomitant]
  7. AUGMENTIN '125' [Concomitant]
  8. ACETYLSALICYLATE LYSINE [Concomitant]

REACTIONS (5)
  - ARTERIAL THROMBOSIS LIMB [None]
  - FEMORAL ARTERY OCCLUSION [None]
  - HAEMATOMA [None]
  - HEPARIN-INDUCED THROMBOCYTOPENIA [None]
  - PERIPHERAL ISCHAEMIA [None]
